FAERS Safety Report 9940518 (Version 1)
Quarter: 2014Q1

REPORT INFORMATION
  Report Type: Spontaneous
  Country: FI (occurrence: FI)
  Receive Date: 20140303
  Receipt Date: 20140303
  Transmission Date: 20141002
  Serious: Yes (Death)
  Sender: FDA-Public Use
  Company Number: FI-MYLANLABS-2014S1003869

PATIENT
  Age: 80 Year
  Sex: Female

DRUGS (4)
  1. DIGOXIN [Suspect]
     Indication: POISONING DELIBERATE
     Route: 065
  2. DIGOXIN [Suspect]
     Indication: OFF LABEL USE
     Route: 065
  3. DIXYRAZINE [Suspect]
     Indication: POISONING DELIBERATE
     Route: 065
  4. DIXYRAZINE [Suspect]
     Route: 065

REACTIONS (2)
  - Poisoning deliberate [Fatal]
  - Condition aggravated [Fatal]
